FAERS Safety Report 12206211 (Version 1)
Quarter: 2016Q1

REPORT INFORMATION
  Report Type: Report from Study
  Country: DE (occurrence: DE)
  Receive Date: 20160324
  Receipt Date: 20160324
  Transmission Date: 20160526
  Serious: Yes (Hospitalization)
  Sender: FDA-Public Use
  Company Number: DE-ABBVIE-16K-062-1589891-00

PATIENT
  Age: 52 Year
  Sex: Female

DRUGS (4)
  1. PREDNISOLONE. [Concomitant]
     Active Substance: PREDNISOLONE
     Indication: PRODUCT USED FOR UNKNOWN INDICATION
  2. HUMIRA [Suspect]
     Active Substance: ADALIMUMAB
     Indication: RHEUMATOID ARTHRITIS
     Route: 058
     Dates: start: 20151228
  3. DAFIRO [Concomitant]
     Active Substance: AMLODIPINE\VALSARTAN
     Indication: PRODUCT USED FOR UNKNOWN INDICATION
  4. FALITHROM [Concomitant]
     Active Substance: PHENPROCOUMON
     Indication: PRODUCT USED FOR UNKNOWN INDICATION

REACTIONS (1)
  - Rehabilitation therapy [Not Recovered/Not Resolved]

NARRATIVE: CASE EVENT DATE: 20160210
